FAERS Safety Report 5639911-8 (Version None)
Quarter: 2008Q1

REPORT INFORMATION
  Report Type: 
  Country: None (occurrence: None)
  Receive Date: 20080225
  Receipt Date: 20080212
  Transmission Date: 20080703
  Serious: No
  Sender: FDA-Public Use
  Company Number: B0508718A

PATIENT
  Age: 84 Year
  Sex: Male

DRUGS (8)
  1. FLUTICASONE PROPIONATE [Suspect]
     Indication: ASTHMA
     Dosage: PER DAY;
     Dates: start: 20010101
  2. TRIOTROPIUM [Concomitant]
  3. DIGOXIN [Concomitant]
  4. FLUINDIONE [Concomitant]
  5. DILTIAZEM HYDROCHLORIDE [Concomitant]
  6. VENLAFAXINE HYDROCHLORIDE [Concomitant]
  7. PRAZEPAM [Concomitant]
  8. LACTULOSE [Concomitant]

REACTIONS (3)
  - HAEMORRHOIDS [None]
  - OESOPHAGITIS [None]
  - URINARY RETENTION [None]
